FAERS Safety Report 5511899-X (Version None)
Quarter: 2007Q4

REPORT INFORMATION
  Report Type: 
  Country: None (occurrence: None)
  Receive Date: 20071109
  Receipt Date: 20071029
  Transmission Date: 20080405
  Serious: Yes (Hospitalization)
  Sender: FDA-Public Use
  Company Number: FR-GENENTECH-250851

PATIENT
  Sex: Female

DRUGS (3)
  1. MABTHERA [Suspect]
     Indication: PEMPHIGUS
     Dosage: 375 MG/M2, 1/WEEK
     Route: 042
     Dates: start: 20070704, end: 20070726
  2. CIPROFLOXACIN HCL [Concomitant]
     Indication: PRODUCTIVE COUGH
     Dates: end: 20070726
  3. CORTANCYL [Concomitant]
     Indication: DRUG USE FOR UNKNOWN INDICATION
     Dosage: 70 MG, UNK
     Dates: start: 20070810

REACTIONS (3)
  - ATELECTASIS [None]
  - INTERSTITIAL LUNG DISEASE [None]
  - PNEUMOCYSTIS JIROVECI INFECTION [None]
